FAERS Safety Report 6766002-5 (Version None)
Quarter: 2010Q2

REPORT INFORMATION
  Report Type: 
  Country: None (occurrence: None)
  Receive Date: 20100611
  Receipt Date: 20100609
  Transmission Date: 20101027
  Serious: Yes (Hospitalization)
  Sender: FDA-Public Use
  Company Number: A0801474A

PATIENT
  Sex: Female

DRUGS (2)
  1. TYKERB [Suspect]
     Indication: BREAST CANCER METASTATIC
     Dosage: 1250MG PER DAY
     Route: 048
     Dates: start: 20090711, end: 20091120
  2. XELODA [Concomitant]

REACTIONS (5)
  - BREAST CANCER [None]
  - CONSTIPATION [None]
  - FEMUR FRACTURE [None]
  - NAUSEA [None]
  - RASH [None]
